FAERS Safety Report 9311282 (Version 1)
Quarter: 2013Q2

REPORT INFORMATION
  Report Type: Spontaneous
  Country: US (occurrence: US)
  Receive Date: 20130528
  Receipt Date: 20130528
  Transmission Date: 20140414
  Serious: Yes (Other)
  Sender: FDA-Public Use
  Company Number: US-PFIZER INC-2013159045

PATIENT
  Age: 60 Year
  Sex: Male

DRUGS (1)
  1. XELJANZ [Suspect]
     Indication: RHEUMATOID ARTHRITIS
     Dosage: UNK
     Dates: start: 201304

REACTIONS (8)
  - C-reactive protein increased [Unknown]
  - Red blood cell sedimentation rate increased [Unknown]
  - Nausea [Unknown]
  - Vomiting [Unknown]
  - Blood electrolytes decreased [Unknown]
  - Blood potassium decreased [Unknown]
  - Abdominal pain [Unknown]
  - Drug ineffective [Unknown]
